FAERS Safety Report 4805800-1 (Version None)
Quarter: 2005Q4

REPORT INFORMATION
  Report Type: 
  Country: None (occurrence: None)
  Receive Date: 20051019
  Receipt Date: 20051011
  Transmission Date: 20060501
  Serious: Yes (Other)
  Sender: FDA-Public Use
  Company Number: 2005-10-0538

PATIENT
  Sex: Male

DRUGS (2)
  1. PEG-INTRON [Suspect]
     Indication: HEPATITIS C
     Dates: start: 20040301, end: 20050528
  2. RIBAVIRIN [Suspect]
     Indication: HEPATITIS C
     Dosage: ORAL
     Route: 048
     Dates: start: 20040301, end: 20050528

REACTIONS (23)
  - ANAEMIA [None]
  - ARTHROPOD BITE [None]
  - BLOODY DISCHARGE [None]
  - CATARACT [None]
  - EYE INFECTION [None]
  - EYE IRRITATION [None]
  - EYE SWELLING [None]
  - INJECTION SITE CELLULITIS [None]
  - INJECTION SITE INFECTION [None]
  - INSOMNIA [None]
  - MYOCARDIAL INFARCTION [None]
  - OTORRHOEA [None]
  - PHOTOPHOBIA [None]
  - RASH ERYTHEMATOUS [None]
  - RETINAL EXUDATES [None]
  - SKIN DISCOLOURATION [None]
  - SKIN ULCER [None]
  - STAPHYLOCOCCAL INFECTION [None]
  - SUICIDAL IDEATION [None]
  - VISION BLURRED [None]
  - VISUAL DISTURBANCE [None]
  - WEIGHT DECREASED [None]
  - WHITE BLOOD CELL COUNT DECREASED [None]
